FAERS Safety Report 9161194 (Version 1)
Quarter: 2013Q1

REPORT INFORMATION
  Report Type: Spontaneous
  Country: US (occurrence: US)
  Receive Date: 20130313
  Receipt Date: 20130313
  Transmission Date: 20140127
  Serious: Yes (Other)
  Sender: FDA-Public Use
  Company Number: US-GLAXOSMITHKLINE-A1014613A

PATIENT
  Age: 43 Year
  Sex: Female

DRUGS (3)
  1. LAMICTAL [Suspect]
     Indication: BIPOLAR DISORDER
     Dosage: 150MG PER DAY
     Route: 048
     Dates: start: 2009, end: 2010
  2. LAMOTRIGINE [Suspect]
     Indication: BIPOLAR DISORDER
     Dosage: 150MG PER DAY
     Route: 048
     Dates: start: 2010, end: 2011
  3. NO CONCURRENT MEDICATION [Concomitant]

REACTIONS (4)
  - Mental impairment [Recovering/Resolving]
  - Disturbance in attention [Unknown]
  - Abulia [Unknown]
  - Judgement impaired [Unknown]
